FAERS Safety Report 9337752 (Version 2)
Quarter: 2013Q4

REPORT INFORMATION
  Report Type: Spontaneous
  Country: US (occurrence: US)
  Receive Date: 20130607
  Receipt Date: 20131118
  Transmission Date: 20140711
  Serious: Yes (Hospitalization)
  Sender: FDA-Public Use
  Company Number: US-B.I. PHARMACEUTICALS,INC./RIDGEFIELD-2013-BI-15911BP

PATIENT
  Age: 58 Year
  Sex: Female
  Weight: 90.72 kg

DRUGS (7)
  1. PRADAXA [Suspect]
     Indication: ANTICOAGULANT THERAPY
     Dosage: 300 MG
     Route: 048
     Dates: start: 20110801, end: 20120327
  2. ASPIRIN [Concomitant]
     Dosage: 81 MG
  3. ISOSORBIDE MONONITRATE [Concomitant]
     Dosage: 60 MG
  4. FUROSEMIDE [Concomitant]
     Dosage: 40 MG
  5. SOTALOL [Concomitant]
     Dosage: 120 MG
  6. SPIRONOLACTONE [Concomitant]
     Dosage: 12.5 MG
  7. LOSARTAN [Concomitant]
     Dosage: 25 MG

REACTIONS (2)
  - Gastrointestinal haemorrhage [Unknown]
  - Normochromic normocytic anaemia [Unknown]
